FAERS Safety Report 24738941 (Version 1)
Quarter: 2024Q4

REPORT INFORMATION
  Report Type: Spontaneous
  Country: US (occurrence: US)
  Receive Date: 20241216
  Receipt Date: 20241216
  Transmission Date: 20250115
  Serious: Yes (Death, Other)
  Sender: AMGEN
  Company Number: US-AMGEN-USASP2024244188

PATIENT

DRUGS (9)
  1. CARFILZOMIB [Suspect]
     Active Substance: CARFILZOMIB
     Indication: Plasma cell myeloma refractory
     Dosage: UNK
     Route: 065
  2. POMALIDOMIDE [Suspect]
     Active Substance: POMALIDOMIDE
     Indication: Plasma cell myeloma refractory
     Dosage: UNK
     Route: 065
  3. BORTEZOMIB [Suspect]
     Active Substance: BORTEZOMIB
     Indication: Plasma cell myeloma refractory
     Dosage: 1.0 MILLIGRAM/SQ. METER ON DAYS 1, 4, 7,10,13,16,19, 22,25,28
     Route: 065
  4. DEXAMETHASONE [Suspect]
     Active Substance: DEXAMETHASONE
     Indication: Plasma cell myeloma refractory
     Dosage: 12 MILLIGRAM ON DAYS 1-4, 7-10, 13-16, 19-22, 25-28
     Route: 065
  5. THALIDOMIDE [Suspect]
     Active Substance: THALIDOMIDE
     Indication: Plasma cell myeloma refractory
     Dosage: 100 MILLIGRAM DAYS 1-28
     Route: 065
  6. DOXORUBICIN [Suspect]
     Active Substance: DOXORUBICIN
     Indication: Plasma cell myeloma refractory
     Dosage: 1.0 MILLIGRAM/SQ. METER
     Route: 065
  7. CISPLATIN [Suspect]
     Active Substance: CISPLATIN
     Indication: Plasma cell myeloma refractory
     Dosage: 1.0 MILLIGRAM/SQ. METER
     Route: 065
  8. ARSENIC TRIOXIDE [Suspect]
     Active Substance: ARSENIC TRIOXIDE
     Indication: Plasma cell myeloma refractory
     Dosage: 0.1 MILLIGRAM/KILOGRAM, QD
     Route: 065
  9. VINCRISTINE [Suspect]
     Active Substance: VINCRISTINE
     Indication: Plasma cell myeloma refractory
     Dosage: 0.07 MILLIGRAM, QD CONTINUOUS INFUSION FOR 28 DAYS
     Route: 065

REACTIONS (6)
  - Infection [Fatal]
  - Cerebrovascular accident [Fatal]
  - Thrombocytopenia [Unknown]
  - Neutropenia [Unknown]
  - Toxicity to various agents [Unknown]
  - Therapy partial responder [Unknown]
